FAERS Safety Report 11700276 (Version 1)
Quarter: 2015Q4

REPORT INFORMATION
  Report Type: Spontaneous
  Country: US (occurrence: None)
  Receive Date: 20151104
  Receipt Date: 20151104
  Transmission Date: 20160304
  Serious: No
  Sender: FDA-Public Use
  Company Number: None

PATIENT
  Age: 54 Year
  Sex: Female

DRUGS (4)
  1. IMITREX [Concomitant]
     Active Substance: SUMATRIPTAN\SUMATRIPTAN SUCCINATE
  2. MULTIVITAMIN [Concomitant]
     Active Substance: VITAMINS
  3. BOTOX COSMETIC [Suspect]
     Active Substance: ONABOTULINUMTOXINA
     Indication: SKIN WRINKLING
     Dosage: 4 TO 6 MONTHS --
  4. ESTROGEN [Concomitant]
     Active Substance: ESTRONE\SUS SCROFA OVARY

REACTIONS (3)
  - Injection site reaction [None]
  - Wrong technique in product usage process [None]
  - Product quality issue [None]

NARRATIVE: CASE EVENT DATE: 20151103
